FAERS Safety Report 8803971 (Version 1)
Quarter: 2012Q4

REPORT INFORMATION
  Report Type: 
  Country: IT (occurrence: IT)
  Receive Date: 20120924
  Receipt Date: 20120924
  Transmission Date: 20130627
  Serious: Yes (Hospitalization)
  Sender: FDA-Public Use
  Company Number: PHHY2012IT082513

PATIENT

DRUGS (6)
  1. TASIGNA [Suspect]
     Indication: CHRONIC MYELOID LEUKAEMIA
     Dosage: 600 mg, daily
     Route: 048
     Dates: start: 20110422, end: 20120314
  2. GLUCOBAY [Concomitant]
     Dosage: 200 mg, UNK
     Route: 048
  3. METFONORM [Concomitant]
     Dosage: 1500 mg, UNK
  4. TORVAST [Concomitant]
     Dosage: 40 mg, UNK
     Route: 048
  5. PLAVIX [Concomitant]
     Route: 048
  6. RAMIPRIL [Concomitant]
     Dosage: 5 mg, UNK
     Route: 048

REACTIONS (1)
  - Cerebral ischaemia [Recovering/Resolving]
